FAERS Safety Report 16324404 (Version 1)
Quarter: 2019Q2

REPORT INFORMATION
  Report Type: Spontaneous
  Country: US (occurrence: US)
  Receive Date: 20190516
  Receipt Date: 20190516
  Transmission Date: 20190711
  Serious: Yes (Other)
  Sender: FDA-Public Use
  Company Number: None

PATIENT
  Sex: Male

DRUGS (2)
  1. KT PORT CLEARVUE POWERPORT [Suspect]
     Active Substance: DEVICE
  2. ALIMTA [Suspect]
     Active Substance: PEMETREXED DISODIUM

REACTIONS (2)
  - Catheter site extravasation [None]
  - Device connection issue [None]

NARRATIVE: CASE EVENT DATE: 20190503
